FAERS Safety Report 18256039 (Version 2)
Quarter: 2020Q4

REPORT INFORMATION
  Report Type: Other
  Country: KR (occurrence: KR)
  Receive Date: 20200910
  Receipt Date: 20201026
  Transmission Date: 20210113
  Serious: Yes (Death, Hospitalization, Other)
  Sender: FDA-Public Use
  Company Number: KR-ROCHE-2672070

PATIENT
  Age: 71 Year
  Sex: Male
  Weight: 64.4 kg

DRUGS (27)
  1. ACLOFEN [Concomitant]
     Indication: HERPES VIRUS INFECTION
     Route: 048
     Dates: start: 20200829, end: 20200831
  2. MUCOSTA [Concomitant]
     Active Substance: REBAMIPIDE
     Indication: ULCER
     Dates: start: 20200731, end: 20200828
  3. TARGIN [Concomitant]
     Active Substance: NALOXONE HYDROCHLORIDE\OXYCODONE HYDROCHLORIDE
     Indication: CANCER PAIN
     Dates: start: 20200829, end: 20200831
  4. TARGIN [Concomitant]
     Active Substance: NALOXONE HYDROCHLORIDE\OXYCODONE HYDROCHLORIDE
     Indication: PROPHYLAXIS
  5. DUROGESIC D TRANS [Concomitant]
     Active Substance: FENTANYL
     Indication: CANCER PAIN
     Dosage: 25 MCG
     Dates: start: 20201005, end: 20201008
  6. ETOPOSIDE. [Suspect]
     Active Substance: ETOPOSIDE
     Indication: SMALL CELL LUNG CANCER EXTENSIVE STAGE
     Route: 042
     Dates: start: 20200804
  7. TRASPEN SEMI [Concomitant]
     Indication: CANCER PAIN
     Dates: start: 20200731
  8. TRAMADOL. [Concomitant]
     Active Substance: TRAMADOL
     Indication: CANCER PAIN
     Route: 042
     Dates: start: 20201001, end: 20201007
  9. PANTOLINE [Concomitant]
     Active Substance: PANTOPRAZOLE SODIUM
     Indication: PEPTIC ULCER
     Route: 042
     Dates: start: 20200925, end: 20201008
  10. PERIDOL [Concomitant]
     Active Substance: HALOPERIDOL
     Route: 042
     Dates: start: 20201008, end: 20201008
  11. MUTERAN [Concomitant]
     Active Substance: ACETYLCYSTEINE
     Indication: PRODUCTIVE COUGH
     Dates: start: 20200827, end: 20200828
  12. TACOPEN [Concomitant]
     Indication: CANCER PAIN
  13. PERIDOL [Concomitant]
     Active Substance: HALOPERIDOL
     Indication: DELIRIUM
     Route: 042
     Dates: start: 20201005, end: 20201005
  14. DENOGAN [Concomitant]
     Active Substance: PROPACETAMOL HYDROCHLORIDE
     Indication: PYREXIA
     Route: 042
     Dates: start: 20200926, end: 20200926
  15. ATEZOLIZUMAB. [Suspect]
     Active Substance: ATEZOLIZUMAB
     Indication: SMALL CELL LUNG CANCER EXTENSIVE STAGE
     Route: 042
     Dates: start: 20200804
  16. LYRICA [Concomitant]
     Active Substance: PREGABALIN
     Indication: HERPES VIRUS INFECTION
     Route: 048
     Dates: start: 20200827, end: 20200828
  17. LEVOTUSS [Concomitant]
     Active Substance: LEVODROPROPIZINE
     Indication: COUGH
     Dates: start: 20200827, end: 20200828
  18. PETHIDINE HCL [Concomitant]
     Indication: CANCER PAIN
     Route: 042
     Dates: start: 20201003, end: 20201004
  19. GLUCOPHAGE [Concomitant]
     Active Substance: METFORMIN HYDROCHLORIDE
     Indication: DIABETES MELLITUS
     Route: 048
     Dates: start: 20200729
  20. MUCOSTA [Concomitant]
     Active Substance: REBAMIPIDE
     Indication: GASTRITIS
  21. TACOPEN [Concomitant]
     Indication: PROPHYLAXIS
     Route: 048
     Dates: start: 20200828, end: 20200831
  22. PETHIDINE HCL [Concomitant]
     Route: 042
     Dates: start: 20201006, end: 20201006
  23. LASIX [Concomitant]
     Active Substance: FUROSEMIDE
     Indication: OEDEMA
     Route: 042
     Dates: start: 20200928, end: 20201008
  24. CARBOPLATIN. [Suspect]
     Active Substance: CARBOPLATIN
     Indication: SMALL CELL LUNG CANCER EXTENSIVE STAGE
     Route: 042
     Dates: start: 20200804
  25. VENITOL [Concomitant]
     Indication: HAEMORRHOIDS
  26. MEDILAC-S [Concomitant]
     Indication: HAEMORRHOIDS
     Dates: start: 20200901
  27. MORPHINE SULFATE. [Concomitant]
     Active Substance: MORPHINE SULFATE
     Route: 042
     Dates: start: 20201006, end: 20201007

REACTIONS (10)
  - Haemorrhoids [Not Recovered/Not Resolved]
  - Hypertension [Recovered/Resolved]
  - Decreased appetite [Not Recovered/Not Resolved]
  - Constipation [Not Recovered/Not Resolved]
  - Diarrhoea [Recovered/Resolved]
  - Colitis [Fatal]
  - Hypotension [Recovered/Resolved]
  - Hypokalaemia [Recovered/Resolved]
  - Stomatitis [Not Recovered/Not Resolved]
  - Liver function test increased [Recovering/Resolving]

NARRATIVE: CASE EVENT DATE: 20200827
